FAERS Safety Report 4891789-6 (Version None)
Quarter: 2006Q1

REPORT INFORMATION
  Report Type: 
  Country: None (occurrence: None)
  Receive Date: 20060126
  Receipt Date: 20060118
  Transmission Date: 20060701
  Serious: Yes (Other)
  Sender: FDA-Public Use
  Company Number: DE-RB-2654-2006

PATIENT
  Age: 61 Year
  Sex: Male

DRUGS (1)
  1. BUPRENORPHINE HCL [Suspect]
     Dosage: 1 IN ONE HOUR
     Route: 062

REACTIONS (1)
  - CHOLECYSTITIS [None]
